FAERS Safety Report 20108302 (Version 1)
Quarter: 2021Q4

REPORT INFORMATION
  Report Type: Spontaneous
  Country: US (occurrence: US)
  Receive Date: 20211124
  Receipt Date: 20211124
  Transmission Date: 20220303
  Serious: Yes (Other)
  Sender: FDA-Public Use
  Company Number: US-MYLANLABS-2021M1086651

PATIENT
  Age: 52 Year
  Sex: Male

DRUGS (1)
  1. DIDANOSINE [Suspect]
     Active Substance: DIDANOSINE
     Indication: Product used for unknown indication
     Dosage: UNK
     Route: 065

REACTIONS (2)
  - Retinopathy [Recovering/Resolving]
  - Visual field defect [Recovering/Resolving]
